FAERS Safety Report 9980800 (Version 1)
Quarter: 2014Q1

REPORT INFORMATION
  Report Type: Spontaneous
  Country: US (occurrence: US)
  Receive Date: 20140307
  Receipt Date: 20140307
  Transmission Date: 20141002
  Serious: Yes (Hospitalization)
  Sender: FDA-Public Use
  Company Number: US-BRISTOL-MYERS SQUIBB COMPANY-20323994

PATIENT
  Age: 58 Year
  Sex: Male
  Weight: 63.49 kg

DRUGS (8)
  1. BARACLUDE [Suspect]
     Indication: HEPATITIS B
     Dates: end: 20140217
  2. VALCYTE [Suspect]
  3. NEXIUM [Concomitant]
  4. MAGNESIUM [Concomitant]
  5. MULTIVITAMIN [Concomitant]
  6. PERCOCET [Concomitant]
  7. TACROLIMUS [Concomitant]
  8. TRAMADOL [Concomitant]

REACTIONS (1)
  - Neutropenia [Unknown]
